FAERS Safety Report 11391675 (Version 1)
Quarter: 2015Q3

REPORT INFORMATION
  Report Type: Spontaneous
  Country: FR (occurrence: FR)
  Receive Date: 20150818
  Receipt Date: 20150818
  Transmission Date: 20151125
  Serious: Yes (Death)
  Sender: FDA-Public Use
  Company Number: FR-BAYER-2015-396910

PATIENT
  Age: 65 Year
  Sex: Female

DRUGS (1)
  1. STIVARGA [Suspect]
     Active Substance: REGORAFENIB
     Indication: ADENOCARCINOMA OF COLON
     Dosage: 80 MG, QD IN THE MORNING 3 WEEKS/4
     Route: 048
     Dates: start: 20150526, end: 20150720

REACTIONS (3)
  - Hepatic encephalopathy [Fatal]
  - Hepatitis [Fatal]
  - Cholecystitis [Fatal]

NARRATIVE: CASE EVENT DATE: 20150712
